FAERS Safety Report 25063224 (Version 1)
Quarter: 2025Q1

REPORT INFORMATION
  Report Type: Spontaneous
  Country: FR (occurrence: FR)
  Receive Date: 20250311
  Receipt Date: 20250311
  Transmission Date: 20250408
  Serious: Yes (Hospitalization, Other)
  Sender: JOHNSON AND JOHNSON
  Company Number: FR-VIIV HEALTHCARE-FR2025EME027282

PATIENT
  Age: 58 Year
  Sex: Male

DRUGS (2)
  1. RILPIVIRINE [Suspect]
     Active Substance: RILPIVIRINE
     Indication: HIV infection
     Dosage: UNK UNK, MO
     Route: 065
     Dates: start: 20241108
  2. VOCABRIA [Suspect]
     Active Substance: CABOTEGRAVIR SODIUM
     Indication: HIV infection
     Dosage: UNK UNK, MO
     Route: 065
     Dates: start: 20241108

REACTIONS (8)
  - Pneumonia haemophilus [Unknown]
  - Diarrhoea [Unknown]
  - Product use in unapproved therapeutic environment [Unknown]
  - Virologic failure [Unknown]
  - Cytomegalovirus infection [Unknown]
  - Pathogen resistance [Unknown]
  - Viral mutation identified [Unknown]
  - Weight decreased [Unknown]

NARRATIVE: CASE EVENT DATE: 20241108
